FAERS Safety Report 24260299 (Version 1)
Quarter: 2024Q3

REPORT INFORMATION
  Report Type: Spontaneous
  Country: US (occurrence: US)
  Receive Date: 20240828
  Receipt Date: 20240828
  Transmission Date: 20241017
  Serious: Yes (Hospitalization)
  Sender: AMERICAN REGENT
  Company Number: US-AMERICAN REGENT INC-2024001746

PATIENT
  Age: 64 Year
  Sex: Female

DRUGS (20)
  1. FERRIC CARBOXYMALTOSE [Suspect]
     Active Substance: FERRIC CARBOXYMALTOSE
     Indication: Product used for unknown indication
     Dosage: UNK
     Route: 042
  2. VENOFER [Suspect]
     Active Substance: IRON SUCROSE
     Indication: Product used for unknown indication
     Dosage: UNK
     Route: 042
  3. RAYALDEE [Suspect]
     Active Substance: CALCIFEDIOL
     Indication: Chronic kidney disease
     Dosage: 30 MICROGRAM, (30 MCG,1 IN 1 D)
     Route: 048
     Dates: start: 20230911, end: 20240324
  4. RAYALDEE [Suspect]
     Active Substance: CALCIFEDIOL
     Indication: Hyperparathyroidism secondary
  5. RAYALDEE [Suspect]
     Active Substance: CALCIFEDIOL
     Indication: Vitamin D deficiency
  6. ALBUTEROL SULFATE [Concomitant]
     Active Substance: ALBUTEROL SULFATE
     Indication: Product used for unknown indication
     Dosage: 108 (90 MCG BASE) MCG/ACT 2 PUFFS EVERY 4 HOURS PRN
     Dates: start: 20230710
  7. NORVASC [Concomitant]
     Active Substance: AMLODIPINE BESYLATE
     Indication: Product used for unknown indication
     Dosage: 5 MG (5 MG,1 IN 1 D)
     Route: 048
  8. LIPITOR [Concomitant]
     Active Substance: ATORVASTATIN CALCIUM
     Indication: Product used for unknown indication
     Dosage: 20 MILLIGRAM, (20 MG,1 IN 1 D)
     Route: 048
     Dates: start: 20230714
  9. WELLBUTRIN [Concomitant]
     Active Substance: BUPROPION HYDROCHLORIDE
     Indication: Product used for unknown indication
     Dosage: 300 MILLIGRAM, 300 MG,1 IN 1 D
     Route: 048
     Dates: start: 20230525
  10. COREG [Concomitant]
     Active Substance: CARVEDILOL
     Indication: Product used for unknown indication
     Dosage: 25 MG TABLET BY MOUTH IN THE MORNING AND 1 TABLET BY MOUTH IN THE EVENING (25 MG,2 IN 1 D)
     Route: 048
  11. FARXIGA [Concomitant]
     Active Substance: DAPAGLIFLOZIN PROPANEDIOL
     Indication: Product used for unknown indication
     Dosage: 10 MILLIGRAM (10 MG,1 IN 1 D)
     Route: 048
     Dates: start: 20230705
  12. BENTYL [Concomitant]
     Active Substance: DICYCLOMINE HYDROCHLORIDE
     Indication: Product used for unknown indication
     Dosage: 10 MILLIGRAM CAPSULE BY MOUTH IN THE MORNING (10 MG)
     Route: 048
  13. BENTYL [Concomitant]
     Active Substance: DICYCLOMINE HYDROCHLORIDE
     Dosage: 10 MILLIGRAM TABLET AT NOON AND 10 MG TABLET IN THE EVENING (10 MG)
     Route: 048
  14. FERROUS SULFATE [Concomitant]
     Active Substance: FERROUS SULFATE
     Indication: Product used for unknown indication
     Dosage: 65 FE, 325 MG TABLET BY MOUTH IN THE MORNING AND 325 MG TABLET BY MOUTH IN THE EVENING (325 MG,2 IN
     Route: 048
  15. LASIX [Concomitant]
     Active Substance: FUROSEMIDE
     Indication: Product used for unknown indication
     Dosage: 40 MILLIGRAM (40 MG,1 IN 1 AS REQUIRED)
     Route: 048
  16. VITAMINS NOS [Concomitant]
     Active Substance: VITAMINS
     Indication: Product used for unknown indication
     Dosage: 1 DOSAGE FORM, (1 IN 1 D)
     Route: 048
  17. BENICAR HCT [Concomitant]
     Active Substance: HYDROCHLOROTHIAZIDE\OLMESARTAN MEDOXOMIL
     Indication: Product used for unknown indication
     Dosage: 20-12.5 MG, ONE TIME EACH DAY, ONGOING (1 IN 1 D)
     Route: 048
     Dates: start: 20230607
  18. PROTONIX [Concomitant]
     Active Substance: PANTOPRAZOLE SODIUM
     Indication: Product used for unknown indication
     Dosage: EC TABLET, BEFORE BREAKFAST (40 MG,1 IN 1 D)
     Route: 048
  19. ZOLOFT [Concomitant]
     Active Substance: SERTRALINE HYDROCHLORIDE
     Indication: Product used for unknown indication
     Dosage: 100 MILLIGRAM, QD
     Route: 048
  20. SPIRONOLACTONE [Concomitant]
     Active Substance: SPIRONOLACTONE
     Indication: Product used for unknown indication
     Dosage: 25 MILLIGRAM (25 MG,1 IN 1 D)
     Route: 048
     Dates: start: 20230830

REACTIONS (1)
  - Dyspnoea [Unknown]

NARRATIVE: CASE EVENT DATE: 20240301
